FAERS Safety Report 6107994-7 (Version None)
Quarter: 2009Q1

REPORT INFORMATION
  Report Type: 
  Country: None (occurrence: None)
  Receive Date: 20090309
  Receipt Date: 20090206
  Transmission Date: 20090719
  Serious: No
  Sender: FDA-Public Use
  Company Number: US-BAYER-200910529BCC

PATIENT
  Age: 85 Year
  Sex: Female
  Weight: 56 kg

DRUGS (9)
  1. ALEVE (CAPLET) [Suspect]
     Indication: POSTOPERATIVE ANALGESIA
     Dosage: TOTAL DAILY DOSE: 220 MG  UNIT DOSE: 220 MG
     Dates: start: 20090101
  2. ALEVE (CAPLET) [Suspect]
     Dosage: TOTAL DAILY DOSE: 220 MG  UNIT DOSE: 220 MG
     Dates: start: 20090205
  3. PHILLIP'S COLON HEALTH [Concomitant]
  4. METAMUCIL [Concomitant]
  5. WALGREEN'S CALCIUM SUPPLEMENT [Concomitant]
  6. VITAMIN D [Concomitant]
  7. VITAMIN B COMPLEX CAP [Concomitant]
  8. CRANBERRY [Concomitant]
  9. ASPIRIN [Concomitant]

REACTIONS (2)
  - CONSTIPATION [None]
  - NAUSEA [None]
